FAERS Safety Report 26001168 (Version 2)
Quarter: 2025Q4

REPORT INFORMATION
  Report Type: Spontaneous
  Country: US (occurrence: US)
  Receive Date: 20251105
  Receipt Date: 20251204
  Transmission Date: 20260118
  Serious: Yes (Other)
  Sender: PFIZER
  Company Number: US-PFIZER INC-202500215271

PATIENT
  Age: 81 Year
  Sex: Female

DRUGS (1)
  1. IBRANCE [Suspect]
     Active Substance: PALBOCICLIB
     Indication: Breast cancer female
     Dosage: 125MG, TK ONE C PO ONCE D FOR 21 DAYS, THEN OFF FOR 7 DAYS
     Route: 048
     Dates: start: 20250129, end: 20251013

REACTIONS (1)
  - Heart valve operation [Recovered/Resolved]

NARRATIVE: CASE EVENT DATE: 20251013
